FAERS Safety Report 7386683-5 (Version None)
Quarter: 2011Q1

REPORT INFORMATION
  Report Type: 
  Country: None (occurrence: None)
  Receive Date: 20110331
  Receipt Date: 20110321
  Transmission Date: 20110831
  Serious: Yes (Other)
  Sender: FDA-Public Use
  Company Number: CA-JNJFOC-20110308249

PATIENT
  Sex: Female
  Weight: 74.39 kg

DRUGS (6)
  1. PREVACID [Concomitant]
  2. STELARA [Suspect]
     Indication: PSORIASIS
     Route: 065
     Dates: start: 20110307
  3. WELLBUTRIN [Concomitant]
  4. ATACAND [Concomitant]
  5. ACCUTANE [Concomitant]
     Indication: RASH PUSTULAR
  6. ALDACTONE [Concomitant]
     Indication: RASH PUSTULAR

REACTIONS (2)
  - DRY SKIN [None]
  - RASH PUSTULAR [None]
